FAERS Safety Report 10755734 (Version 1)
Quarter: 2015Q1

REPORT INFORMATION
  Report Type: Spontaneous
  Country: US (occurrence: None)
  Receive Date: 20150123
  Receipt Date: 20150123
  Transmission Date: 20150721
  Serious: No
  Sender: FDA-Public Use
  Company Number: 20145TUS010328

PATIENT
  Age: 48 Year
  Sex: Female
  Weight: 74.8 kg

DRUGS (1)
  1. ENTYVIO [Suspect]
     Active Substance: VEDOLIZUMAB
     Indication: CROHN^S DISEASE
     Dosage: 300 MG, FIRST DOSE, 4.8 ML STERILE H2O IN 250 ML NS, INTRAVENOUS
     Route: 042
     Dates: start: 20140930, end: 20140930

REACTIONS (2)
  - Infusion site swelling [None]
  - Pain in extremity [None]

NARRATIVE: CASE EVENT DATE: 20141001
